FAERS Safety Report 7221957-X (Version None)
Quarter: 2011Q1

REPORT INFORMATION
  Report Type: 
  Country: None (occurrence: None)
  Receive Date: 20110112
  Receipt Date: 20110110
  Transmission Date: 20110831
  Serious: Yes (Hospitalization)
  Sender: FDA-Public Use
  Company Number: B0692778A

PATIENT
  Age: 89 Year
  Sex: Female

DRUGS (2)
  1. ZOVIRAX [Concomitant]
     Route: 065
     Dates: start: 20101218
  2. ZELITREX [Suspect]
     Route: 065
     Dates: start: 20101217, end: 20101218

REACTIONS (4)
  - RESTLESSNESS [None]
  - HALLUCINATION [None]
  - AGITATION [None]
  - DISORIENTATION [None]
